FAERS Safety Report 20391214 (Version 1)
Quarter: 2022Q1

REPORT INFORMATION
  Report Type: Spontaneous
  Country: GB (occurrence: GB)
  Receive Date: 20220128
  Receipt Date: 20220128
  Transmission Date: 20220423
  Serious: Yes (Other)
  Sender: FDA-Public Use
  Company Number: GB-MYLANLABS-2022M1008301

PATIENT
  Age: 46 Year
  Sex: Female

DRUGS (5)
  1. OLANZAPINE [Suspect]
     Active Substance: OLANZAPINE
     Indication: Hallucination, visual
     Dosage: 2.5 MILLIGRAM, ON [SIC]
     Route: 065
  2. OLANZAPINE [Suspect]
     Active Substance: OLANZAPINE
     Dosage: 10 MILLIGRAM
     Route: 065
  3. LOFEPRAMINE [Suspect]
     Active Substance: LOFEPRAMINE
     Indication: Hallucination, visual
     Dosage: GRADUALLY WITHDRAWN
     Route: 065
  4. RIVASTIGMINE [Suspect]
     Active Substance: RIVASTIGMINE
     Indication: Hallucination, visual
     Dosage: 1.5 MILLIGRAM, BID
     Route: 065
  5. RIVASTIGMINE [Suspect]
     Active Substance: RIVASTIGMINE
     Dosage: 3 MILLIGRAM, BID
     Route: 065

REACTIONS (2)
  - Drug ineffective [Unknown]
  - Off label use [Unknown]
